FAERS Safety Report 17256552 (Version 1)
Quarter: 2020Q1

REPORT INFORMATION
  Report Type: Other
  Country: US (occurrence: US)
  Receive Date: 20200110
  Receipt Date: 20200110
  Transmission Date: 20200409
  Serious: Yes (Hospitalization)
  Sender: FDA-Public Use
  Company Number: US-SUNRISE PHARMACEUTICAL, INC.-2078805

PATIENT
  Age: 42 Year
  Sex: Female

DRUGS (5)
  1. DEXAMFETAMINE [D-AMPHETAMINE] [Suspect]
     Active Substance: DEXTROAMPHETAMINE
     Route: 065
  2. ACEPROMAZINE [Suspect]
     Active Substance: ACEPROMAZINE
     Route: 065
  3. BUSPIRONE [Suspect]
     Active Substance: BUSPIRONE HYDROCHLORIDE
     Route: 065
  4. OXYCODONE HYDROCHLORIDE. [Suspect]
     Active Substance: OXYCODONE HYDROCHLORIDE
     Indication: PRODUCT USED FOR UNKNOWN INDICATION
     Route: 065
  5. DICYCLOMINE [Suspect]
     Active Substance: DICYCLOMINE HYDROCHLORIDE
     Route: 065

REACTIONS (9)
  - Depressed level of consciousness [Recovering/Resolving]
  - Neuroleptic malignant syndrome [Recovering/Resolving]
  - Renal failure [Recovered/Resolved]
  - Shock [Unknown]
  - Overdose [Recovered/Resolved]
  - Rhabdomyolysis [Not Recovered/Not Resolved]
  - Mydriasis [Recovering/Resolving]
  - Metabolic acidosis [Unknown]
  - Hypothermia [Recovering/Resolving]
